FAERS Safety Report 15734309 (Version 2)
Quarter: 2019Q1

REPORT INFORMATION
  Report Type: Spontaneous
  Country: US (occurrence: US)
  Receive Date: 20181218
  Receipt Date: 20190211
  Transmission Date: 20190417
  Serious: Yes (Hospitalization, Other)
  Sender: FDA-Public Use
  Company Number: US-TORRENT-00007298

PATIENT
  Age: 13 Year
  Sex: Female
  Weight: 64 kg

DRUGS (1)
  1. LEVETIRACETAM. [Suspect]
     Active Substance: LEVETIRACETAM
     Indication: SEIZURE
     Dosage: THREE TIMES DAILY
     Route: 048

REACTIONS (1)
  - Meningitis aseptic [Recovered/Resolved]
